FAERS Safety Report 8909213 (Version 1)
Quarter: 2012Q4

REPORT INFORMATION
  Report Type: Spontaneous
  Country: US (occurrence: None)
  Receive Date: 20121113
  Receipt Date: 20121113
  Transmission Date: 20130627
  Serious: Yes (Other)
  Sender: FDA-Public Use
  Company Number: None

PATIENT
  Age: 64 Year
  Sex: Male

DRUGS (2)
  1. MYFORTIC [Suspect]
     Dosage: 540MG BID PO
     Route: 048
     Dates: start: 20120202
  2. TACROLIMUS [Suspect]
     Dosage: 1MG BID PO
     Route: 048
     Dates: start: 20120202

REACTIONS (3)
  - Loss of consciousness [None]
  - Amnesia [None]
  - Confusional state [None]
